FAERS Safety Report 7494105-9 (Version None)
Quarter: 2011Q2

REPORT INFORMATION
  Report Type: 
  Country: None (occurrence: None)
  Receive Date: 20110520
  Receipt Date: 20110511
  Transmission Date: 20111010
  Serious: Yes (Hospitalization)
  Sender: FDA-Public Use
  Company Number: FR-ABBOTT-11P-056-0726407-00

PATIENT
  Age: 12 Year
  Sex: Male
  Weight: 35 kg

DRUGS (12)
  1. ESOMEPRAZOLE MAGNESIUM [Suspect]
     Indication: GASTRIC ULCER
     Route: 048
     Dates: start: 20110207
  2. NAPROXEN [Suspect]
     Indication: PRODUCT USED FOR UNKNOWN INDICATION
     Route: 048
     Dates: start: 20100427, end: 20101231
  3. SODIUM BICARBONATE [Concomitant]
     Indication: PRODUCT USED FOR UNKNOWN INDICATION
  4. VALPROIC ACID [Suspect]
     Indication: CONVULSION
     Route: 048
     Dates: start: 20101127
  5. PHOSPHONEUROS [Concomitant]
     Indication: PRODUCT USED FOR UNKNOWN INDICATION
  6. CLARITHROMYCIN [Suspect]
     Indication: HELICOBACTER INFECTION
     Dates: start: 20110207, end: 20110207
  7. ADVIL LIQUI-GELS [Suspect]
     Indication: ARTHRALGIA
     Route: 048
     Dates: start: 20101231, end: 20110215
  8. NAPROXEN [Suspect]
     Route: 048
     Dates: start: 20091101, end: 20091130
  9. UVESTEROL [Concomitant]
     Indication: PRODUCT USED FOR UNKNOWN INDICATION
     Dates: end: 20110216
  10. LEVOCARNIL [Concomitant]
     Indication: PRODUCT USED FOR UNKNOWN INDICATION
  11. AMOXICILLIN [Suspect]
     Indication: HELICOBACTER INFECTION
     Route: 048
     Dates: start: 20110207, end: 20110214
  12. HEXATRIONE [Concomitant]
     Indication: PRODUCT USED FOR UNKNOWN INDICATION
     Dates: start: 20100427

REACTIONS (1)
  - RENAL FAILURE ACUTE [None]
